FAERS Safety Report 18128382 (Version 1)
Quarter: 2020Q3

REPORT INFORMATION
  Report Type: Spontaneous
  Country: US (occurrence: US)
  Receive Date: 20200807
  Receipt Date: 20200807
  Transmission Date: 20201103
  Serious: No
  Sender: FDA-Public Use
  Company Number: None

PATIENT
  Age: 28 Year
  Sex: Female
  Weight: 60.75 kg

DRUGS (6)
  1. JOINT SUPPORT SUPPLEMENT [Concomitant]
  2. TURMERIC [Concomitant]
     Active Substance: HERBALS\TURMERIC
  3. OMEPRAZOLE. [Concomitant]
     Active Substance: OMEPRAZOLE
  4. FLUCONAZOLE TABLET USP [Suspect]
     Active Substance: FLUCONAZOLE
     Indication: VULVOVAGINAL MYCOTIC INFECTION
     Dosage: ?          QUANTITY:1 TABLET(S);OTHER FREQUENCY:TAKEN ONCE;?
     Route: 048
     Dates: start: 20200806
  5. I?THEANINE [Concomitant]
  6. ESTROGEN [Concomitant]
     Active Substance: ESTROGENS

REACTIONS (5)
  - Paraesthesia oral [None]
  - Lip blister [None]
  - Burning sensation [None]
  - Lip swelling [None]
  - Hypoaesthesia oral [None]

NARRATIVE: CASE EVENT DATE: 20200806
